FAERS Safety Report 17638094 (Version 1)
Quarter: 2020Q2

REPORT INFORMATION
  Report Type: Spontaneous
  Country: US (occurrence: US)
  Receive Date: 20200406
  Receipt Date: 20200406
  Transmission Date: 20200713
  Serious: Yes (Life-Threatening, Hospitalization)
  Sender: FDA-Public Use
  Company Number: None

PATIENT
  Age: 14 Year
  Sex: Female
  Weight: 46.72 kg

DRUGS (4)
  1. MULTI VITAMIN [Concomitant]
     Active Substance: VITAMINS
  2. KROGER IBUPROFEN TABLETS 200MG-500 COATED [Suspect]
     Active Substance: IBUPROFEN
     Indication: PAIN
     Dosage: ?          QUANTITY:500;OTHER FREQUENCY:1TAB 4-6HOURS;?
     Route: 048
     Dates: start: 20190828, end: 20190829
  3. TYLENOL [Concomitant]
     Active Substance: ACETAMINOPHEN
  4. EPI - PEN [Concomitant]

REACTIONS (6)
  - Ill-defined disorder [None]
  - Urticaria [None]
  - Anaphylactic shock [None]
  - Vomiting [None]
  - Loss of consciousness [None]
  - Product substitution issue [None]

NARRATIVE: CASE EVENT DATE: 20190829
